FAERS Safety Report 9418830 (Version 2)
Quarter: 2013Q3

REPORT INFORMATION
  Report Type: Spontaneous
  Country: US (occurrence: US)
  Receive Date: 20130725
  Receipt Date: 20130822
  Transmission Date: 20140515
  Serious: Yes (Hospitalization)
  Sender: FDA-Public Use
  Company Number: US-JNJFOC-20130709191

PATIENT
  Sex: Female
  Weight: 57.61 kg

DRUGS (5)
  1. DURAGESIC [Suspect]
     Indication: NECK PAIN
     Route: 062
  2. DURAGESIC [Suspect]
     Indication: NECK PAIN
     Dosage: INITIATED IN 2002 OR 2003
     Route: 062
  3. DURAGESIC [Suspect]
     Indication: BACK PAIN
     Route: 062
  4. DURAGESIC [Suspect]
     Indication: BACK PAIN
     Dosage: INITIATED IN 2002 OR 2003
     Route: 062
  5. NEURONTIN [Concomitant]
     Indication: FIBROMYALGIA
     Route: 048

REACTIONS (11)
  - Intervertebral disc disorder [Not Recovered/Not Resolved]
  - Road traffic accident [Recovered/Resolved]
  - Neoplasm [Recovered/Resolved]
  - Chronic obstructive pulmonary disease [Unknown]
  - Pneumonia [Recovered/Resolved]
  - Drug administered at inappropriate site [Not Recovered/Not Resolved]
  - Wrong technique in drug usage process [Not Recovered/Not Resolved]
  - Wrong technique in drug usage process [Unknown]
  - Product quality issue [Unknown]
  - Hyperhidrosis [Not Recovered/Not Resolved]
  - Wrong technique in drug usage process [Not Recovered/Not Resolved]
